FAERS Safety Report 10642376 (Version 1)
Quarter: 2014Q4

REPORT INFORMATION
  Report Type: Spontaneous
  Country: US (occurrence: US)
  Receive Date: 20141210
  Receipt Date: 20141210
  Transmission Date: 20150529
  Serious: No
  Sender: FDA-Public Use
  Company Number: US-BIOGENIDEC-2014BI129765

PATIENT
  Age: 48 Year
  Sex: Female

DRUGS (1)
  1. TECFIDERA [Suspect]
     Active Substance: DIMETHYL FUMARATE
     Indication: MULTIPLE SCLEROSIS

REACTIONS (6)
  - Abdominal discomfort [Unknown]
  - Abdominal pain upper [Unknown]
  - Asthenia [Unknown]
  - Fatigue [Unknown]
  - Intentional underdose [Unknown]
  - Hypersomnia [Unknown]

NARRATIVE: CASE EVENT DATE: 20141127
